FAERS Safety Report 7307645-X (Version None)
Quarter: 2011Q1

REPORT INFORMATION
  Report Type: 
  Country: None (occurrence: None)
  Receive Date: 20110223
  Receipt Date: 20110218
  Transmission Date: 20110831
  Serious: Yes (Other)
  Sender: FDA-Public Use
  Company Number: JP-PFIZER INC-2011012472

PATIENT
  Age: 63 Year
  Sex: Male
  Weight: 62 kg

DRUGS (1)
  1. SOLU-CORTEF [Suspect]
     Indication: HYPOPITUITARISM
     Dosage: 150 MG, UNK
     Route: 042

REACTIONS (1)
  - DIABETES INSIPIDUS [None]
